FAERS Safety Report 24802300 (Version 1)
Quarter: 2025Q1

REPORT INFORMATION
  Report Type: Spontaneous
  Country: US (occurrence: US)
  Receive Date: 20250103
  Receipt Date: 20250103
  Transmission Date: 20250409
  Serious: No
  Sender: CIPLA
  Company Number: US-CIPLA LTD.-2024US04322

PATIENT

DRUGS (3)
  1. BUDESONIDE [Suspect]
     Active Substance: BUDESONIDE
     Indication: Eosinophilic oesophagitis
     Dosage: UNK, BID, SWALLOW BUDESONIDE INHALATION SUSPENSION 0.5 MG/2 ML/MIX IT WITH STEVIA (FAKE SUGAR) AND D
     Route: 048
  2. ALBUTEROL [Concomitant]
     Active Substance: ALBUTEROL
     Indication: Product used for unknown indication
     Dosage: UNK, BID
     Route: 065
  3. ADVAIR HFA [Concomitant]
     Active Substance: FLUTICASONE PROPIONATE\SALMETEROL XINAFOATE
     Indication: Product used for unknown indication
     Route: 065

REACTIONS (1)
  - Off label use [Unknown]

NARRATIVE: CASE EVENT DATE: 20240401
